APPROVED DRUG PRODUCT: TRI-LINYAH
Active Ingredient: ETHINYL ESTRADIOL; NORGESTIMATE
Strength: 0.035MG,0.035MG,0.035MG;0.18MG,0.215MG,0.25MG
Dosage Form/Route: TABLET;ORAL-28
Application: A090524 | Product #001 | TE Code: AB
Applicant: NOVAST LABORATORIES LTD
Approved: May 30, 2012 | RLD: No | RS: No | Type: RX